FAERS Safety Report 7180151-1 (Version None)
Quarter: 2010Q4

REPORT INFORMATION
  Report Type: 
  Country: None (occurrence: None)
  Receive Date: 20101221
  Receipt Date: 20101203
  Transmission Date: 20110411
  Serious: No
  Sender: FDA-Public Use
  Company Number: US-PFIZER INC-2010164143

PATIENT
  Sex: Male
  Weight: 95.2 kg

DRUGS (6)
  1. CELEBREX [Suspect]
     Indication: BACK PAIN
     Dosage: 200 MG, DAILY
     Route: 048
  2. AVODART [Concomitant]
     Dosage: 0.5 MG, DAILY
  3. TIAZAC [Concomitant]
     Dosage: 300 MG, DAILY
  4. ZOCOR [Concomitant]
     Indication: HYPERTENSION
     Dosage: 80 MG, DAILY
  5. PRILOSEC [Concomitant]
     Dosage: 20 MG, DAILY
  6. ACETYLSALICYLIC ACID [Concomitant]
     Dosage: UNK

REACTIONS (2)
  - CAPILLARY DISORDER [None]
  - PRURITUS [None]
